FAERS Safety Report 16314974 (Version 1)
Quarter: 2019Q2

REPORT INFORMATION
  Report Type: Spontaneous
  Country: US (occurrence: US)
  Receive Date: 20190410
  Receipt Date: 20190410
  Transmission Date: 20190711
  Serious: Yes (Hospitalization)
  Sender: FDA-Public Use
  Company Number: None

PATIENT
  Age: 69 Year
  Sex: Male
  Weight: 138.3 kg

DRUGS (1)
  1. VITAMIN D3 [Suspect]
     Active Substance: CHOLECALCIFEROL
     Indication: COLON CANCER
     Route: 048
     Dates: start: 20190307, end: 20190311

REACTIONS (7)
  - Pulmonary embolism [None]
  - Sinus tachycardia [None]
  - Troponin T increased [None]
  - Bifascicular block [None]
  - Gastroenteritis [None]
  - Deep vein thrombosis [None]
  - Acute kidney injury [None]

NARRATIVE: CASE EVENT DATE: 20190314
